FAERS Safety Report 4830606-7 (Version None)
Quarter: 2005Q4

REPORT INFORMATION
  Report Type: 
  Country: None (occurrence: None)
  Receive Date: 20051115
  Receipt Date: 20051104
  Transmission Date: 20060501
  Serious: Yes (Hospitalization)
  Sender: FDA-Public Use
  Company Number: 2005152480

PATIENT
  Age: 40 Year
  Sex: Female
  Weight: 50 kg

DRUGS (4)
  1. XANAX [Suspect]
     Indication: ILL-DEFINED DISORDER
     Dosage: 750 MCG, ORAL
     Route: 048
     Dates: end: 20050607
  2. LEVOTHYROXINE SODIUM [Suspect]
     Indication: HYPOTHYROIDISM
     Dosage: 125 MCG, ORAL
     Route: 048
  3. IMOVANE (ZOPICLONE) [Suspect]
     Indication: ILL-DEFINED DISORDER
     Dosage: 7.5 MG, ORAL
     Route: 048
     Dates: end: 20050607
  4. ZOVIRAX [Suspect]
     Indication: HERPES VIRUS INFECTION
     Dosage: 800  MG (200 MG), ORAL
     Route: 048
     Dates: end: 20050607

REACTIONS (5)
  - DELIRIUM [None]
  - HALLUCINATION [None]
  - HALLUCINATIONS, MIXED [None]
  - INAPPROPRIATE AFFECT [None]
  - MANIA [None]
